FAERS Safety Report 15118496 (Version 1)
Quarter: 2018Q3

REPORT INFORMATION
  Report Type: Report from Study
  Country: None (occurrence: US)
  Receive Date: 20180708
  Receipt Date: 20180708
  Transmission Date: 20181010
  Serious: Yes (Other)
  Sender: FDA-Public Use
  Company Number: US-ABBVIE-18S-163-2408241-00

PATIENT
  Age: 73 Year
  Sex: Female

DRUGS (1)
  1. CREON [Suspect]
     Active Substance: PANCRELIPASE AMYLASE\PANCRELIPASE LIPASE\PANCRELIPASE PROTEASE
     Indication: PRODUCT USED FOR UNKNOWN INDICATION
     Route: 048

REACTIONS (10)
  - Chronic kidney disease [Unknown]
  - Polyp [Unknown]
  - Haemorrhoids [Unknown]
  - Oesophageal stenosis [Unknown]
  - Depression [Unknown]
  - Anaemia [Unknown]
  - Osteoporosis [Unknown]
  - Raynaud^s phenomenon [Unknown]
  - Drug therapy [Unknown]
  - Colonoscopy [Unknown]

NARRATIVE: CASE EVENT DATE: 20130130
